FAERS Safety Report 5847874-5 (Version None)
Quarter: 2008Q3

REPORT INFORMATION
  Report Type: 
  Country: None (occurrence: None)
  Receive Date: 20080818
  Receipt Date: 20080812
  Transmission Date: 20090109
  Serious: Yes (Hospitalization, Other)
  Sender: FDA-Public Use
  Company Number: FR-WYE-H04241308

PATIENT
  Sex: Female

DRUGS (6)
  1. PANTOPRAZOLE SODIUM [Suspect]
     Dosage: 20 MG (FREQUENCY UNSPECIFIED)
     Route: 048
     Dates: start: 20020101, end: 20080514
  2. DOMPERIDONE [Concomitant]
     Dosage: UNKNOWN
     Dates: start: 20080301
  3. ISPAGHULA [Concomitant]
     Dosage: 5.6 G
     Dates: start: 20080506
  4. SORBITOL [Concomitant]
     Dosage: 3.8 G
     Dates: start: 20080506
  5. ISOBAR [Suspect]
     Indication: HYPERTENSION
     Dosage: 5/150 MG (FREQUENCY UNSPECIFIED)
     Dates: start: 20010101, end: 20080514
  6. LEVOTHYROXINE SODIUM [Concomitant]
     Dosage: 150 UG/ML (DROPS), 16 DOSE FORMS, 1 IN 1 DAY
     Route: 048

REACTIONS (14)
  - ANOREXIA [None]
  - ASTHENIA [None]
  - BLOOD ANTIDIURETIC HORMONE DECREASED [None]
  - BLOOD GLUCOSE DECREASED [None]
  - CULTURE URINE POSITIVE [None]
  - ESCHERICHIA INFECTION [None]
  - GENERAL PHYSICAL HEALTH DETERIORATION [None]
  - HYPONATRAEMIA [None]
  - MALAISE [None]
  - MASS [None]
  - NAUSEA [None]
  - PANCREATIC CARCINOMA [None]
  - URINARY TRACT INFECTION [None]
  - VOMITING [None]
